FAERS Safety Report 11422871 (Version 2)
Quarter: 2015Q3

REPORT INFORMATION
  Report Type: Spontaneous
  Country: IT (occurrence: IT)
  Receive Date: 20150827
  Receipt Date: 20150831
  Transmission Date: 20151125
  Serious: Yes (Life-Threatening)
  Sender: FDA-Public Use
  Company Number: IT-SA-2015SA129717

PATIENT
  Age: 78 Year
  Sex: Female
  Weight: 40 kg

DRUGS (7)
  1. LASIX [Concomitant]
     Active Substance: FUROSEMIDE
     Indication: HYPERTENSION
     Dosage: STRENGTH: 25 MG
  2. PANTORC [Concomitant]
     Active Substance: PANTOPRAZOLE SODIUM
     Indication: GASTRITIS
     Dosage: STRENGTH: 20 MG?GASTRORESISTANT DOSE:1 UNIT(S)
     Route: 048
  3. COUMADIN [Suspect]
     Active Substance: WARFARIN SODIUM
     Dosage: DOSE:1 UNIT(S)
     Route: 048
     Dates: start: 20150107, end: 20150308
  4. ROCALTROL [Concomitant]
     Active Substance: CALCITRIOL
     Indication: OSTEOPOROSIS
     Dosage: STRENGTH: 0.25 MCG DOSE:1 UNIT(S)
     Route: 048
  5. SOTALOL HYDROCHLORIDE. [Concomitant]
     Active Substance: SOTALOL HYDROCHLORIDE
     Indication: SUPRAVENTRICULAR TACHYCARDIA
     Route: 048
  6. CLEXANE [Suspect]
     Active Substance: ENOXAPARIN SODIUM
     Dosage: DOSE: 4000, UNITS NOT SPECIFIED
     Route: 065
     Dates: start: 20150130, end: 20150308
  7. COMPENDIUM [Concomitant]
     Active Substance: BROMAZEPAM
     Dosage: STRENGTH: 0.25 MG/ML
     Route: 048

REACTIONS (5)
  - Muscle haemorrhage [Recovering/Resolving]
  - Ascites [Recovering/Resolving]
  - Retroperitoneal haematoma [Recovering/Resolving]
  - Spontaneous haematoma [Recovering/Resolving]
  - Medication error [Unknown]

NARRATIVE: CASE EVENT DATE: 20150308
